FAERS Safety Report 11472036 (Version 1)
Quarter: 2015Q3

REPORT INFORMATION
  Report Type: Spontaneous
  Country: AU (occurrence: AU)
  Receive Date: 20150908
  Receipt Date: 20150908
  Transmission Date: 20151125
  Serious: Yes (Other)
  Sender: FDA-Public Use
  Company Number: AU-BAYER-2015-416783

PATIENT
  Age: 47 Year

DRUGS (1)
  1. MIRENA [Suspect]
     Active Substance: LEVONORGESTREL
     Indication: MENOMETRORRHAGIA
     Dosage: UNK
     Dates: start: 20150825, end: 20150828

REACTIONS (9)
  - Dysuria [Recovered/Resolved]
  - Uterine contractions abnormal [Recovered/Resolved]
  - Abdominal pain lower [Recovered/Resolved]
  - Abdominal pain [Recovered/Resolved]
  - Anorectal discomfort [Recovered/Resolved]
  - Depressed mood [Recovered/Resolved]
  - Urinary retention [Recovered/Resolved]
  - Pelvic pain [Recovered/Resolved]
  - Proctalgia [Recovered/Resolved]

NARRATIVE: CASE EVENT DATE: 20150825
